FAERS Safety Report 14348946 (Version 2)
Quarter: 2018Q1

REPORT INFORMATION
  Report Type: Spontaneous
  Country: DE (occurrence: DE)
  Receive Date: 20180104
  Receipt Date: 20180324
  Transmission Date: 20180509
  Serious: Yes (Other)
  Sender: FDA-Public Use
  Company Number: DE-ROCHE-2046214

PATIENT
  Age: 27 Year
  Sex: Male
  Weight: 85 kg

DRUGS (19)
  1. TRAMETINIB [Suspect]
     Active Substance: TRAMETINIB
     Route: 065
     Dates: start: 201603, end: 201603
  2. DABRAFENIB [Suspect]
     Active Substance: DABRAFENIB
     Indication: PRODUCT USED FOR UNKNOWN INDICATION
     Route: 065
     Dates: start: 201510, end: 201612
  3. DABRAFENIB [Suspect]
     Active Substance: DABRAFENIB
     Route: 065
     Dates: start: 201601, end: 201602
  4. TRAMETINIB [Suspect]
     Active Substance: TRAMETINIB
     Indication: PRODUCT USED FOR UNKNOWN INDICATION
     Route: 065
     Dates: start: 201703
  5. DABRAFENIB [Suspect]
     Active Substance: DABRAFENIB
     Route: 065
     Dates: start: 201604, end: 201605
  6. DABRAFENIB [Suspect]
     Active Substance: DABRAFENIB
     Route: 065
     Dates: start: 201703
  7. NIVOLUMAB [Suspect]
     Active Substance: NIVOLUMAB
     Indication: MALIGNANT MELANOMA
     Route: 065
     Dates: start: 20160915, end: 20170209
  8. TRAMETINIB [Suspect]
     Active Substance: TRAMETINIB
     Route: 065
     Dates: start: 201512, end: 201601
  9. IPILIMUMAB [Suspect]
     Active Substance: IPILIMUMAB
     Indication: MALIGNANT MELANOMA
     Route: 065
  10. TRAMETINIB [Suspect]
     Active Substance: TRAMETINIB
     Route: 065
     Dates: start: 201604, end: 201605
  11. TRAMETINIB [Suspect]
     Active Substance: TRAMETINIB
     Route: 065
     Dates: start: 201602, end: 201602
  12. TRAMETINIB [Suspect]
     Active Substance: TRAMETINIB
     Route: 065
     Dates: start: 201603, end: 201604
  13. DABRAFENIB [Suspect]
     Active Substance: DABRAFENIB
     Route: 065
     Dates: start: 201605
  14. DABRAFENIB [Suspect]
     Active Substance: DABRAFENIB
     Route: 065
     Dates: start: 201512, end: 201601
  15. VEMURAFENIB. [Suspect]
     Active Substance: VEMURAFENIB
     Indication: PRODUCT USED FOR UNKNOWN INDICATION
     Route: 065
     Dates: start: 201601, end: 201602
  16. COBIMETINIB. [Suspect]
     Active Substance: COBIMETINIB
     Indication: PRODUCT USED FOR UNKNOWN INDICATION
     Route: 065
     Dates: start: 201601
  17. TRAMETINIB [Suspect]
     Active Substance: TRAMETINIB
     Route: 065
     Dates: start: 201510, end: 201512
  18. DABRAFENIB [Suspect]
     Active Substance: DABRAFENIB
     Route: 065
     Dates: start: 201603, end: 201604
  19. DABRAFENIB [Suspect]
     Active Substance: DABRAFENIB
     Route: 065
     Dates: start: 201603, end: 201603

REACTIONS (5)
  - Myositis [Unknown]
  - Off label use [Unknown]
  - Blood creatine phosphokinase increased [Recovered/Resolved]
  - Malignant neoplasm progression [Unknown]
  - Hypophysitis [Recovered/Resolved]

NARRATIVE: CASE EVENT DATE: 20161031
